FAERS Safety Report 16973933 (Version 3)
Quarter: 2019Q4

REPORT INFORMATION
  Report Type: Spontaneous
  Country: US (occurrence: US)
  Receive Date: 20191030
  Receipt Date: 20191125
  Transmission Date: 20200122
  Serious: No
  Sender: FDA-Public Use
  Company Number: US-LEO PHARMA-326084

PATIENT
  Age: 61 Year
  Sex: Male

DRUGS (4)
  1. AMLODAPINE [Concomitant]
     Indication: HYPERTENSION
     Route: 048
  2. DAIVONEX [Suspect]
     Active Substance: CALCIPOTRIENE
     Indication: PSORIASIS
     Route: 061
     Dates: start: 20191022, end: 20191022
  3. LEVOTHYROXINE. [Concomitant]
     Active Substance: LEVOTHYROXINE
     Indication: THYROID DISORDER
     Dosage: LEVOTHYROXINE 0.2
     Route: 048
  4. DAIVONEX [Suspect]
     Active Substance: CALCIPOTRIENE
     Route: 061
     Dates: start: 20191114

REACTIONS (3)
  - Disturbance in attention [Recovered/Resolved]
  - Vision blurred [Recovered/Resolved]
  - Memory impairment [Recovered/Resolved]
